FAERS Safety Report 19025973 (Version 1)
Quarter: 2021Q1

REPORT INFORMATION
  Report Type: Spontaneous
  Country: US (occurrence: US)
  Receive Date: 20210316
  Receipt Date: 20210316
  Transmission Date: 20210420
  Serious: Yes (Hospitalization)
  Sender: FDA-Public Use
  Company Number: None

PATIENT
  Age: 60 Year
  Sex: Male
  Weight: 114.31 kg

DRUGS (1)
  1. TRAMADOL (TRAMADOL HCL 50MG TAB) [Suspect]
     Active Substance: TRAMADOL HYDROCHLORIDE
     Indication: PAIN
     Route: 048
     Dates: start: 20180906, end: 20181121

REACTIONS (1)
  - Seizure [None]

NARRATIVE: CASE EVENT DATE: 20181121
